FAERS Safety Report 12783724 (Version 1)
Quarter: 2016Q3

REPORT INFORMATION
  Report Type: Report from Study
  Country: PR (occurrence: PR)
  Receive Date: 20160927
  Receipt Date: 20160927
  Transmission Date: 20161109
  Serious: Yes (Death)
  Sender: FDA-Public Use
  Company Number: PR-BIOGEN-2016BI00286028

PATIENT
  Sex: Female

DRUGS (2)
  1. TYSABRI [Suspect]
     Active Substance: NATALIZUMAB
     Indication: MULTIPLE SCLEROSIS
     Route: 042
     Dates: start: 20120629, end: 20140718
  2. TYSABRI [Suspect]
     Active Substance: NATALIZUMAB
     Route: 042
     Dates: start: 20141121, end: 20160810

REACTIONS (4)
  - Multiple sclerosis [Fatal]
  - T-lymphocyte count decreased [Unknown]
  - Death [Fatal]
  - Infection [Unknown]
